FAERS Safety Report 5788863-9 (Version None)
Quarter: 2008Q2

REPORT INFORMATION
  Report Type: 
  Country: None (occurrence: None)
  Receive Date: 20080626
  Receipt Date: 20071130
  Transmission Date: 20081010
  Serious: No
  Sender: FDA-Public Use
  Company Number: US-ASTRAZENECA-2007UW27427

PATIENT
  Age: 66 Year
  Sex: Female
  Weight: 65.8 kg

DRUGS (4)
  1. PULMICORT RESPULES [Suspect]
     Indication: CHRONIC OBSTRUCTIVE PULMONARY DISEASE
     Route: 055
  2. SPIRIVA [Concomitant]
  3. PRILOSEC [Concomitant]
  4. ALBUTEROL [Concomitant]

REACTIONS (2)
  - COUGH [None]
  - VULVOVAGINAL PRURITUS [None]
